FAERS Safety Report 7915775 (Version 3)
Quarter: 2012Q4

REPORT INFORMATION
  Report Type: 
  Country: JP (occurrence: JP)
  Receive Date: 20110426
  Receipt Date: 20120919
  Transmission Date: 20130627
  Serious: Yes (Hospitalization)
  Sender: FDA-Public Use
  Company Number: JP-ELI_LILLY_AND_COMPANY-JP201103008645

PATIENT
  Age: 75 Year
  Sex: Male

DRUGS (2)
  1. FORTEO [Suspect]
     Dosage: UNK
     Route: 058
     Dates: start: 20110306
  2. CALCIUM [Concomitant]
     Route: 048

REACTIONS (5)
  - Fracture [Unknown]
  - Arthralgia [Unknown]
  - Myalgia [Unknown]
  - Injection site swelling [Unknown]
  - Needle track marks [Unknown]
